FAERS Safety Report 9467605 (Version 1)
Quarter: 2013Q3

REPORT INFORMATION
  Report Type: Spontaneous
  Country: US (occurrence: US)
  Receive Date: 20130821
  Receipt Date: 20130821
  Transmission Date: 20140515
  Serious: Yes (Hospitalization, Other)
  Sender: FDA-Public Use
  Company Number: US-MYLANLABS-2012S1015748

PATIENT
  Sex: Female

DRUGS (4)
  1. LISINOPRIL TABLETS, USP [Suspect]
     Indication: BLOOD PRESSURE INCREASED
     Dates: start: 20120320, end: 20120329
  2. LATUDA [Suspect]
     Indication: HALLUCINATION
     Route: 048
     Dates: start: 20120223, end: 20120318
  3. LATUDA [Suspect]
     Indication: HALLUCINATION
     Route: 048
     Dates: start: 20120319, end: 20120329
  4. FANAPT [Concomitant]

REACTIONS (1)
  - Angioedema [Recovered/Resolved]
